FAERS Safety Report 11992193 (Version 1)
Quarter: 2016Q1

REPORT INFORMATION
  Report Type: Spontaneous
  Country: US (occurrence: US)
  Receive Date: 20160203
  Receipt Date: 20160203
  Transmission Date: 20160526
  Serious: No
  Sender: FDA-Public Use
  Company Number: US-JNJFOC-20151224412

PATIENT
  Age: 80 Year
  Sex: Female
  Weight: 45.36 kg

DRUGS (2)
  1. TYLENOL REGULAR STRENGTH [Suspect]
     Active Substance: ACETAMINOPHEN
     Indication: ARTHRALGIA
     Dosage: HALF TABLET IN THE AM AND HALF AT NOON THEN A WHOLE TABLET AT NIGHT
     Route: 048
  2. TYLENOL REGULAR STRENGTH [Suspect]
     Active Substance: ACETAMINOPHEN
     Indication: ARTHRALGIA
     Dosage: 1 TABLET IN THE AM, 1/2 AT NOON AND THEN 1 WHOLE ONE IN THE PM.
     Route: 048
     Dates: start: 20151220

REACTIONS (1)
  - Incorrect dose administered [Unknown]
